FAERS Safety Report 6567419-4 (Version None)
Quarter: 2010Q1

REPORT INFORMATION
  Report Type: 
  Country: None (occurrence: None)
  Receive Date: 20100128
  Receipt Date: 20100122
  Transmission Date: 20100710
  Serious: Yes (Hospitalization)
  Sender: FDA-Public Use
  Company Number: A0840933A

PATIENT
  Age: 45 Year
  Sex: Male

DRUGS (7)
  1. CALCIUM CARBONATE            SUGAR FREE ORANGE [Suspect]
     Indication: ERUCTATION
     Dates: start: 20100110, end: 20100110
  2. ASPIRIN [Concomitant]
  3. LOSARTAN POTASSIUM [Concomitant]
  4. JANUMET [Concomitant]
  5. ENALAPRIL MALEATE [Concomitant]
  6. SIMVASTATIN [Concomitant]
  7. FELODIPINE [Concomitant]

REACTIONS (11)
  - DISORIENTATION [None]
  - DRUG HYPERSENSITIVITY [None]
  - FATIGUE [None]
  - GENERALISED OEDEMA [None]
  - OEDEMA PERIPHERAL [None]
  - PRURITUS GENERALISED [None]
  - PRURITUS GENITAL [None]
  - SOMNOLENCE [None]
  - SWELLING FACE [None]
  - SWOLLEN TONGUE [None]
  - URTICARIA [None]
